FAERS Safety Report 4441118-7 (Version None)
Quarter: 2004Q3

REPORT INFORMATION
  Report Type: 
  Country: None (occurrence: None)
  Receive Date: 20040902
  Receipt Date: 20040902
  Transmission Date: 20050211
  Serious: Yes (Life-Threatening, Hospitalization)
  Sender: FDA-Public Use
  Company Number: None

PATIENT
  Age: 48 Year
  Sex: Female
  Weight: 61 kg

DRUGS (4)
  1. MITOMYCIN-C BULK POWDER [Suspect]
     Indication: ANAL CANCER
     Dosage: BOLUS IV X 2
     Route: 040
     Dates: start: 20031001
  2. MITOMYCIN-C BULK POWDER [Suspect]
     Indication: ANAL CANCER
     Dosage: BOLUS IV X 2
     Route: 040
     Dates: start: 20031028
  3. FLUOROURACIL [Suspect]
     Indication: ANAL CANCER
     Dosage: CONTINUOUS INFUSION X 4 DAYS X 2
     Route: 042
     Dates: start: 20031001, end: 20031005
  4. FLUOROURACIL [Suspect]
     Indication: ANAL CANCER
     Dosage: CONTINUOUS INFUSION X 4 DAYS X 2
     Route: 042
     Dates: start: 20031028, end: 20031028

REACTIONS (2)
  - FEBRILE NEUTROPENIA [None]
  - SEPSIS [None]
